FAERS Safety Report 6231642-9 (Version None)
Quarter: 2009Q2

REPORT INFORMATION
  Report Type: 
  Country: None (occurrence: None)
  Receive Date: 20090612
  Receipt Date: 20090612
  Transmission Date: 20091009
  Serious: Yes (Life-Threatening, Hospitalization, Other)
  Sender: FDA-Public Use
  Company Number: None

PATIENT
  Age: 47 Year
  Sex: Female
  Weight: 51.2565 kg

DRUGS (2)
  1. TEQUIN [Suspect]
     Indication: COUGH
     Dosage: I ONLY TOO THE FIRST TABLET
  2. TEQUIN [Suspect]
     Indication: UPPER RESPIRATORY TRACT INFECTION
     Dosage: I ONLY TOO THE FIRST TABLET

REACTIONS (2)
  - ANAPHYLACTIC REACTION [None]
  - CHEST DISCOMFORT [None]
